FAERS Safety Report 9092648 (Version 4)
Quarter: 2013Q2

REPORT INFORMATION
  Report Type: Report from Study
  Country: KE (occurrence: KE)
  Receive Date: 20130218
  Receipt Date: 20130423
  Transmission Date: 20140414
  Serious: Yes (Hospitalization, Other)
  Sender: FDA-Public Use
  Company Number: KE-GILEAD-2013-0069920

PATIENT
  Age: 28 Year
  Sex: Female

DRUGS (2)
  1. EFAVIRENZ/EMTRICITABINE/TENOFOVIR DISOPROXIL FUMARATE [Suspect]
     Indication: ACQUIRED IMMUNODEFICIENCY SYNDROME
     Dosage: 1 DF, QD
     Route: 048
     Dates: start: 20130104, end: 20130131
  2. SEPTRIN [Concomitant]
     Dosage: UNK
     Dates: end: 20130131

REACTIONS (3)
  - Gastroenteritis [Not Recovered/Not Resolved]
  - Anaemia [Unknown]
  - Renal failure acute [Recovered/Resolved]
